FAERS Safety Report 7584344-0 (Version None)
Quarter: 2011Q2

REPORT INFORMATION
  Report Type: 
  Country: None (occurrence: None)
  Receive Date: 20110531
  Receipt Date: 20110318
  Transmission Date: 20111010
  Serious: Yes (Life-Threatening, Other)
  Sender: FDA-Public Use
  Company Number: WAES 1103USA02579

PATIENT
  Age: 45 Year
  Sex: Male
  Weight: 155.1302 kg

DRUGS (4)
  1. PREDNISONE [Concomitant]
  2. METFORMIN HCL [Concomitant]
  3. JANUMET [Suspect]
     Indication: TYPE 2 DIABETES MELLITUS
     Dosage: 1000MG/50 MG/BID/PO
     Route: 048
     Dates: start: 20110224, end: 20110314
  4. SAVELLA [Concomitant]

REACTIONS (1)
  - STEVENS-JOHNSON SYNDROME [None]
